FAERS Safety Report 24732078 (Version 2)
Quarter: 2024Q4

REPORT INFORMATION
  Report Type: Spontaneous
  Country: CN (occurrence: CN)
  Receive Date: 20241213
  Receipt Date: 20241218
  Transmission Date: 20250115
  Serious: Yes (Life-Threatening, Other)
  Sender: BIOVITRUM
  Company Number: CN-Wanbang Biopharmaceuticals-ADR20242315

PATIENT
  Age: 40 Year
  Sex: Female
  Weight: 55 kg

DRUGS (1)
  1. AVATROMBOPAG MALEATE [Suspect]
     Active Substance: AVATROMBOPAG MALEATE
     Indication: Thrombocytopenia
     Dosage: DAILY
     Route: 048
     Dates: start: 20241011, end: 20241014

REACTIONS (2)
  - Embolism [Recovering/Resolving]
  - Deep vein thrombosis [Recovering/Resolving]

NARRATIVE: CASE EVENT DATE: 20241015
